FAERS Safety Report 9240544 (Version 2)
Quarter: 2013Q2

REPORT INFORMATION
  Report Type: Spontaneous
  Country: JP (occurrence: JP)
  Receive Date: 20130418
  Receipt Date: 20130503
  Transmission Date: 20140414
  Serious: Yes (Other)
  Sender: FDA-Public Use
  Company Number: JP-OTSUKA-JP-2013-10965

PATIENT
  Age: 16 Year
  Sex: Female

DRUGS (2)
  1. SAMSCA [Suspect]
     Indication: CARDIAC FAILURE ACUTE
     Dosage: 3.75 MG MILLIGRAM(S), DAILY DOSE
     Route: 048
  2. SAMSCA [Suspect]
     Dosage: 15 MG MILLIGRAM(S), DAILY DOSE
     Route: 048

REACTIONS (1)
  - Renal failure acute [Unknown]
